FAERS Safety Report 5678808-4 (Version None)
Quarter: 2008Q1

REPORT INFORMATION
  Report Type: 
  Country: None (occurrence: None)
  Receive Date: 20080321
  Receipt Date: 20080311
  Transmission Date: 20080703
  Serious: Yes (Other)
  Sender: FDA-Public Use
  Company Number: JPI-P-003184

PATIENT
  Age: 41 Year
  Sex: Male

DRUGS (1)
  1. XYREM [Suspect]
     Indication: DRUG USE FOR UNKNOWN INDICATION
     Dosage: ORAL
     Route: 048

REACTIONS (7)
  - FALL [None]
  - HAND FRACTURE [None]
  - HEAD INJURY [None]
  - HEADACHE [None]
  - JOINT DISLOCATION [None]
  - NAUSEA [None]
  - OPEN FRACTURE [None]
